FAERS Safety Report 4449838-5 (Version None)
Quarter: 2004Q3

REPORT INFORMATION
  Report Type: 
  Country: None (occurrence: None)
  Receive Date: 20040803
  Receipt Date: 20031002
  Transmission Date: 20050211
  Serious: Yes (Hospitalization)
  Sender: FDA-Public Use
  Company Number: CERZ-10418

PATIENT
  Age: 28 Month
  Sex: Female

DRUGS (1)
  1. CEREZYME [Suspect]
     Indication: GAUCHER'S DISEASE
     Dosage: 800 UNITS Q2WKS IV
     Route: 042
     Dates: start: 19990527

REACTIONS (2)
  - PYREXIA [None]
  - URTICARIA [None]
